FAERS Safety Report 23921066 (Version 2)
Quarter: 2024Q2

REPORT INFORMATION
  Report Type: Spontaneous
  Country: US (occurrence: US)
  Receive Date: 20240530
  Receipt Date: 20240612
  Transmission Date: 20240715
  Serious: Yes (Life-Threatening, Hospitalization)
  Sender: FDA-Public Use
  Company Number: US-TEVA-VS-3201926

PATIENT
  Age: 57 Year
  Sex: Female

DRUGS (3)
  1. BUPROPION [Suspect]
     Active Substance: BUPROPION
     Indication: Depression
     Route: 065
  2. CHLORDIAZEPOXIDE [Suspect]
     Active Substance: CHLORDIAZEPOXIDE
     Indication: Seizure
     Route: 065
  3. PROPRANOLOL [Suspect]
     Active Substance: PROPRANOLOL HYDROCHLORIDE
     Indication: Product used for unknown indication
     Route: 065

REACTIONS (11)
  - Generalised tonic-clonic seizure [Recovering/Resolving]
  - Coma [Recovering/Resolving]
  - Renal tubular necrosis [Recovering/Resolving]
  - Myocardial ischaemia [Recovering/Resolving]
  - Ejection fraction decreased [Recovering/Resolving]
  - Drug ineffective [Unknown]
  - Acute kidney injury [Recovering/Resolving]
  - Intentional overdose [Unknown]
  - Cardiogenic shock [Recovered/Resolved]
  - Cardiovascular disorder [Recovering/Resolving]
  - Areflexia [Recovering/Resolving]
